FAERS Safety Report 7793436-2 (Version None)
Quarter: 2011Q4

REPORT INFORMATION
  Report Type: 
  Country: None (occurrence: None)
  Receive Date: 20111003
  Receipt Date: 20110926
  Transmission Date: 20120403
  Serious: Yes (Other)
  Sender: FDA-Public Use
  Company Number: PHHY2011JP85520

PATIENT
  Age: 56 Year
  Sex: Female

DRUGS (3)
  1. DOCETAXEL [Suspect]
     Dosage: 44 MG, PER BODY, BIWEEKLY
  2. CAPECITABINE [Suspect]
     Indication: BREAST CANCER
     Dosage: 1764 MG/M2, PER DAY
  3. DOCETAXEL [Suspect]
     Dosage: 64 MG, PER BODY, BIWEEKLY

REACTIONS (1)
  - PALMAR-PLANTAR ERYTHRODYSAESTHESIA SYNDROME [None]
